FAERS Safety Report 14262623 (Version 1)
Quarter: 2017Q4

REPORT INFORMATION
  Report Type: Spontaneous
  Country: US (occurrence: US)
  Receive Date: 20171208
  Receipt Date: 20171208
  Transmission Date: 20180321
  Serious: No
  Sender: FDA-Public Use
  Company Number: US-PFIZER INC-2017521823

PATIENT
  Sex: Female

DRUGS (2)
  1. ADVIL [Suspect]
     Active Substance: IBUPROFEN
     Dosage: UNK (2 WEEKS, TOOK 3, AT THE MOST, A DAY)
  2. ASPIRIN /00002701/ [Interacting]
     Active Substance: ASPIRIN
     Dosage: 81 MG, DAILY

REACTIONS (2)
  - Intentional product misuse [Unknown]
  - Potentiating drug interaction [Unknown]
